FAERS Safety Report 12440912 (Version 1)
Quarter: 2016Q2

REPORT INFORMATION
  Report Type: Spontaneous
  Country: FR (occurrence: FR)
  Receive Date: 20160607
  Receipt Date: 20160607
  Transmission Date: 20160815
  Serious: Yes (Hospitalization)
  Sender: FDA-Public Use
  Company Number: FR-BIOGEN-2015BI059174

PATIENT
  Age: 45 Year
  Sex: Female

DRUGS (1)
  1. TYSABRI [Suspect]
     Active Substance: NATALIZUMAB
     Indication: MULTIPLE SCLEROSIS
     Dosage: INFUSED OVER 1 HOUR
     Route: 042
     Dates: start: 20150122, end: 20150528

REACTIONS (8)
  - Nausea [Unknown]
  - Drug specific antibody present [Unknown]
  - Hypersensitivity [Recovered/Resolved]
  - Vomiting [Unknown]
  - Dyspnoea [Unknown]
  - Headache [Unknown]
  - Inhibiting antibodies [Not Recovered/Not Resolved]
  - Cyanosis [Unknown]

NARRATIVE: CASE EVENT DATE: 20150423
